FAERS Safety Report 8492710-4 (Version None)
Quarter: 2012Q3

REPORT INFORMATION
  Report Type: 
  Country: None (occurrence: None)
  Receive Date: 20120706
  Receipt Date: 20120622
  Transmission Date: 20120928
  Serious: Yes (Hospitalization)
  Sender: FDA-Public Use
  Company Number: MX-MYLANLABS-2012S1013054

PATIENT
  Age: 26 Year
  Sex: Female

DRUGS (8)
  1. ZUCLOPENTHIXOL [Suspect]
     Indication: AGGRESSION
     Dosage: DEPOT
     Route: 065
  2. CLOZAPINE [Suspect]
     Indication: CATATONIA
     Dosage: 100 MG/D; LATER RESTARTED
     Route: 065
  3. LORAZEPAM [Concomitant]
     Indication: CATATONIA
     Dosage: UP TO 12 MG/D
     Route: 048
  4. CLOZAPINE [Suspect]
     Indication: DYSTONIA
     Dosage: 100 MG/D; LATER RESTARTED
     Route: 065
  5. RISPERIDONE [Suspect]
     Indication: PSYCHOTIC DISORDER
     Dosage: 2MG
     Route: 065
  6. CLOZAPINE [Suspect]
     Route: 065
  7. OLANZAPINE [Suspect]
     Indication: PSYCHOMOTOR HYPERACTIVITY
     Dosage: TITRATED UP TO 20 MG/D
     Route: 065
  8. CLOZAPINE [Suspect]
     Route: 065

REACTIONS (2)
  - NEUTROPENIA [None]
  - CATATONIA [None]
